FAERS Safety Report 5959422-X (Version None)
Quarter: 2008Q4

REPORT INFORMATION
  Report Type: 
  Country: None (occurrence: None)
  Receive Date: 20081120
  Receipt Date: 20080922
  Transmission Date: 20090506
  Serious: No
  Sender: FDA-Public Use
  Company Number: A0748587A

PATIENT
  Age: 4 Year
  Sex: Male

DRUGS (2)
  1. VERAMYST [Suspect]
     Indication: SINUSITIS
     Dosage: 1SPR PER DAY
     Route: 045
     Dates: start: 20080918
  2. SINGULAIR [Concomitant]

REACTIONS (4)
  - COUGH [None]
  - OROPHARYNGEAL PAIN [None]
  - PYREXIA [None]
  - VOMITING [None]
